FAERS Safety Report 16495599 (Version 6)
Quarter: 2020Q2

REPORT INFORMATION
  Report Type: Spontaneous
  Country: US (occurrence: US)
  Receive Date: 20190628
  Receipt Date: 20200519
  Transmission Date: 20200713
  Serious: No
  Sender: FDA-Public Use
  Company Number: US-PFIZER INC-2019265405

PATIENT
  Age: 78 Year
  Sex: Female

DRUGS (1)
  1. LYRICA [Suspect]
     Active Substance: PREGABALIN
     Dosage: 75 MG, 1X/DAY
     Route: 048

REACTIONS (5)
  - Sensitivity to weather change [Unknown]
  - Pain [Unknown]
  - Hypersensitivity [Not Recovered/Not Resolved]
  - Condition aggravated [Unknown]
  - Intentional product use issue [Unknown]
